FAERS Safety Report 22586814 (Version 1)
Quarter: 2023Q2

REPORT INFORMATION
  Report Type: Report from Study
  Country: US (occurrence: US)
  Receive Date: 20230611
  Receipt Date: 20230611
  Transmission Date: 20230721
  Serious: Yes (Hospitalization, Other)
  Sender: FDA-Public Use
  Company Number: US-ABBVIE-5283982

PATIENT
  Sex: Male

DRUGS (1)
  1. IMBRUVICA [Suspect]
     Active Substance: IBRUTINIB
     Indication: Chronic lymphocytic leukaemia
     Route: 048
     Dates: start: 201709

REACTIONS (6)
  - Skin cancer [Unknown]
  - Atrial fibrillation [Unknown]
  - Pulmonary contusion [Recovered/Resolved]
  - Hypertension [Unknown]
  - Fall [Unknown]
  - Pulmonary contusion [Unknown]

NARRATIVE: CASE EVENT DATE: 20220701
